FAERS Safety Report 22324472 (Version 1)
Quarter: 2023Q2

REPORT INFORMATION
  Report Type: Spontaneous
  Country: None (occurrence: US)
  Receive Date: 20230516
  Receipt Date: 20230516
  Transmission Date: 20230721
  Serious: Yes (Death)
  Sender: FDA-Public Use
  Company Number: US-Mission Pharmacal Company-2141508

PATIENT
  Age: 87 Year
  Sex: Female

DRUGS (12)
  1. THIOLA EC [Suspect]
     Active Substance: TIOPRONIN
     Indication: Cystinuria
     Route: 048
     Dates: start: 20140913, end: 20230504
  2. CRESTOR [Concomitant]
     Active Substance: ROSUVASTATIN CALCIUM
  3. ASPIRIN [Concomitant]
     Active Substance: ASPIRIN
  4. PLAVIX [Concomitant]
     Active Substance: CLOPIDOGREL BISULFATE
  5. ESTRACE [Concomitant]
     Active Substance: ESTRADIOL
  6. METOPROLOL [Concomitant]
     Active Substance: METOPROLOL
  7. DONEPEZIL [Concomitant]
     Active Substance: DONEPEZIL
  8. MYRBETRIQ [Concomitant]
     Active Substance: MIRABEGRON
  9. PANTOPRAZOLE [Concomitant]
     Active Substance: PANTOPRAZOLE
  10. VITAMINS [Concomitant]
     Active Substance: VITAMINS
  11. CALCIUM [Concomitant]
     Active Substance: CALCIUM
  12. ACETAMINOPHEN [Concomitant]
     Active Substance: ACETAMINOPHEN

REACTIONS (1)
  - Death [Fatal]

NARRATIVE: CASE EVENT DATE: 20230504
